FAERS Safety Report 16780859 (Version 1)
Quarter: 2019Q3

REPORT INFORMATION
  Report Type: Report from Study
  Country: FR (occurrence: FR)
  Receive Date: 20190906
  Receipt Date: 20190906
  Transmission Date: 20191005
  Serious: Yes (Other)
  Sender: FDA-Public Use
  Company Number: FR-JNJFOC-20190839235

PATIENT

DRUGS (1)
  1. CAELYX [Suspect]
     Active Substance: DOXORUBICIN HYDROCHLORIDE
     Indication: BREAST CANCER
     Route: 065

REACTIONS (13)
  - Urinary tract infection [Unknown]
  - Skin infection [Unknown]
  - Folliculitis [Unknown]
  - Pharyngitis [Unknown]
  - Infection [Unknown]
  - Oral candidiasis [Unknown]
  - Herpes virus infection [Unknown]
  - Nasopharyngitis [Unknown]
  - Pneumonia [Unknown]
  - Fungal infection [Unknown]
  - Lower respiratory tract infection [Unknown]
  - Herpes zoster [Unknown]
  - Upper respiratory tract infection [Unknown]
